FAERS Safety Report 10411271 (Version 2)
Quarter: 2014Q3

REPORT INFORMATION
  Report Type: Spontaneous
  Country: US (occurrence: US)
  Receive Date: 20140826
  Receipt Date: 20140826
  Transmission Date: 20150326
  Serious: No
  Sender: FDA-Public Use
  Company Number: US-ASTRAZENECA-2013SE64781

PATIENT
  Age: 30 Year
  Sex: Female
  Weight: 69.9 kg

DRUGS (11)
  1. SYMBICORT [Suspect]
     Active Substance: BUDESONIDE\FORMOTEROL FUMARATE DIHYDRATE
     Indication: ASTHMA
     Dosage: 160/4.5 MCG, TWO PUFFS  TWO TIMES A DAY
     Route: 055
     Dates: end: 20130817
  2. NEXIUM [Suspect]
     Active Substance: ESOMEPRAZOLE MAGNESIUM
     Indication: GASTROOESOPHAGEAL REFLUX DISEASE
     Route: 048
  3. FIBROCON [Concomitant]
  4. CELEXA [Concomitant]
     Active Substance: CITALOPRAM HYDROBROMIDE
  5. DEPAKOTE [Concomitant]
     Active Substance: DIVALPROEX SODIUM
  6. VITAMIN E [Concomitant]
     Active Substance: .ALPHA.-TOCOPHEROL
  7. NAPROXIN [Concomitant]
     Active Substance: NAPROXEN
  8. LOBUTRIL [Concomitant]
  9. MUCINEX [Concomitant]
     Active Substance: GUAIFENESIN
  10. ABILIFY [Concomitant]
     Active Substance: ARIPIPRAZOLE
  11. MIRALAX [Concomitant]
     Active Substance: POLYETHYLENE GLYCOL 3350

REACTIONS (3)
  - Drug dose omission [Unknown]
  - Abnormal behaviour [Unknown]
  - Intentional product misuse [Unknown]

NARRATIVE: CASE EVENT DATE: 20130624
